FAERS Safety Report 24184615 (Version 1)
Quarter: 2024Q3

REPORT INFORMATION
  Report Type: Report from Study
  Country: CA (occurrence: CA)
  Receive Date: 20240807
  Receipt Date: 20240807
  Transmission Date: 20241017
  Serious: Yes (Other)
  Sender: SANDOZ
  Company Number: CA-002147023-NVSC2022CA178836

PATIENT
  Age: 26 Year
  Sex: Female

DRUGS (1)
  1. HYRIMOZ [Suspect]
     Active Substance: ADALIMUMAB-ADAZ
     Indication: Crohn^s disease
     Dosage: 40 MG,WEEKLY
     Route: 058
     Dates: start: 20220321

REACTIONS (8)
  - Intestinal obstruction [Unknown]
  - Polycystic ovarian syndrome [Unknown]
  - Diarrhoea [Unknown]
  - Anal fissure [Recovered/Resolved]
  - Joint stiffness [Unknown]
  - COVID-19 [Unknown]
  - Product dose omission issue [Unknown]
  - Off label use [Unknown]

NARRATIVE: CASE EVENT DATE: 20230501
